FAERS Safety Report 10388091 (Version 6)
Quarter: 2015Q3

REPORT INFORMATION
  Report Type: Report from Study
  Country: US (occurrence: US)
  Receive Date: 20140815
  Receipt Date: 20150929
  Transmission Date: 20151125
  Serious: Yes (Other)
  Sender: FDA-Public Use
  Company Number: PHEH2014US012625

PATIENT
  Sex: Female
  Weight: 73.92 kg

DRUGS (2)
  1. GILENYA [Suspect]
     Active Substance: FINGOLIMOD HYDROCHLORIDE
     Indication: MULTIPLE SCLEROSIS
     Dosage: 0.5 MG, QD
     Route: 048
     Dates: start: 20130503
  2. GILENYA [Suspect]
     Active Substance: FINGOLIMOD HYDROCHLORIDE
     Dosage: 0.5 MG, QD
     Route: 048
     Dates: start: 20130503

REACTIONS (9)
  - Multiple sclerosis relapse [Unknown]
  - Fatigue [Unknown]
  - Amnesia [Unknown]
  - Palpitations [Unknown]
  - Dyskinesia [Not Recovered/Not Resolved]
  - Gait disturbance [Unknown]
  - Central nervous system lesion [Unknown]
  - Reflexes abnormal [Unknown]
  - White blood cell count decreased [Unknown]
